FAERS Safety Report 7589526-X (Version None)
Quarter: 2011Q3

REPORT INFORMATION
  Report Type: 
  Country: None (occurrence: None)
  Receive Date: 20110705
  Receipt Date: 20110621
  Transmission Date: 20111222
  Serious: Yes (Other)
  Sender: FDA-Public Use
  Company Number: SE-JNJFOC-20110610199

PATIENT
  Age: 55 Year
  Sex: Female

DRUGS (1)
  1. REMICADE [Suspect]
     Indication: MUSCULOSKELETAL PAIN
     Route: 042
     Dates: start: 20110621

REACTIONS (6)
  - HYPERTENSION [None]
  - CHEST DISCOMFORT [None]
  - INFUSION RELATED REACTION [None]
  - DISCOMFORT [None]
  - HYPOAESTHESIA [None]
  - ANXIETY [None]
